FAERS Safety Report 15805469 (Version 1)
Quarter: 2019Q1

REPORT INFORMATION
  Report Type: Spontaneous
  Country: IT (occurrence: IT)
  Receive Date: 20190110
  Receipt Date: 20190110
  Transmission Date: 20190417
  Serious: Yes (Other)
  Sender: FDA-Public Use
  Company Number: IT-TEVA-2019-IT-996890

PATIENT
  Age: 54 Year
  Sex: Male

DRUGS (8)
  1. OMEGA 3 TEVA [Suspect]
     Active Substance: OMEGA-3-ACID ETHYL ESTERS
     Indication: TYPE V HYPERLIPIDAEMIA
     Dosage: 1000 MILLIGRAM DAILY;
     Route: 048
     Dates: start: 20181209, end: 20181215
  2. PANTOPRAZOLE [Suspect]
     Active Substance: PANTOPRAZOLE
     Dosage: 20 MILLIGRAM DAILY;
     Route: 048
     Dates: start: 20181209, end: 20181215
  3. CARVASIN 5 MG COMPRESSE SUBLINGUALI [Concomitant]
     Route: 060
     Dates: start: 20181214
  4. ATORVASTATIN [Suspect]
     Active Substance: ATORVASTATIN
     Indication: TYPE V HYPERLIPIDAEMIA
     Dosage: 40 MILLIGRAM DAILY;
     Route: 048
     Dates: start: 20181209, end: 20181215
  5. BRILIQUE 90 MG FILM-COATED TABLETS [Concomitant]
     Active Substance: TICAGRELOR
     Indication: ACUTE MYOCARDIAL INFARCTION
     Dosage: 90 MILLIGRAM DAILY;
     Route: 048
     Dates: start: 20181210
  6. RAMIPRIL. [Suspect]
     Active Substance: RAMIPRIL
     Indication: HYPERTENSION
     Dosage: 1.25 MILLIGRAM DAILY;
     Route: 048
     Dates: start: 20181209, end: 20181215
  7. ACETYLSALICYLIC ACID [Concomitant]
     Active Substance: ASPIRIN
     Dosage: 100 MILLIGRAM DAILY;
     Route: 048
     Dates: start: 20181210
  8. TARGIN 5 MG/2,5MG COMPRESSE A RILASCIO PROLUNGATO [Concomitant]
     Active Substance: NALOXONE HYDROCHLORIDE\OXYCODONE HYDROCHLORIDE
     Indication: MUSCULOSKELETAL PAIN
     Dosage: 5 MILLIGRAM DAILY;
     Route: 048
     Dates: start: 20181202

REACTIONS (2)
  - Pruritus generalised [Recovering/Resolving]
  - Rash erythematous [Recovering/Resolving]

NARRATIVE: CASE EVENT DATE: 20181215
